FAERS Safety Report 18331641 (Version 2)
Quarter: 2020Q4

REPORT INFORMATION
  Report Type: Spontaneous
  Country: RU (occurrence: RU)
  Receive Date: 20200930
  Receipt Date: 20201014
  Transmission Date: 20210113
  Serious: Yes (Other)
  Sender: FDA-Public Use
  Company Number: NVSC2020RU263686

PATIENT
  Sex: Female

DRUGS (2)
  1. EVEROLIMUS. [Suspect]
     Active Substance: EVEROLIMUS
     Indication: BREAST CANCER STAGE II
     Dosage: UNK
     Route: 065
     Dates: start: 20191230, end: 20200429
  2. EXEMESTANE. [Suspect]
     Active Substance: EXEMESTANE
     Indication: BREAST CANCER STAGE II
     Dosage: UNK
     Route: 065
     Dates: start: 20191230, end: 20200429

REACTIONS (7)
  - Breast cancer stage II [Unknown]
  - Gallbladder disorder [Unknown]
  - Lung neoplasm [Unknown]
  - Bone disorder [Unknown]
  - Hydrothorax [Unknown]
  - Malignant neoplasm progression [Unknown]
  - Atelectasis [Unknown]
